FAERS Safety Report 7559223-5 (Version None)
Quarter: 2011Q2

REPORT INFORMATION
  Report Type: 
  Country: None (occurrence: None)
  Receive Date: 20110613
  Receipt Date: 20110601
  Transmission Date: 20111010
  Serious: Yes (Other)
  Sender: FDA-Public Use
  Company Number: ACO_25043_2011

PATIENT
  Age: 49 Year
  Sex: Female

DRUGS (3)
  1. PREMARIN [Concomitant]
  2. COPAXONE [Concomitant]
  3. AMPYRA [Suspect]
     Indication: PRODUCT USED FOR UNKNOWN INDICATION
     Dosage: 10 MG, BID, ORAL
     Route: 048
     Dates: start: 20110504

REACTIONS (3)
  - LIVER DISORDER [None]
  - RENAL DISORDER [None]
  - HEADACHE [None]
